FAERS Safety Report 9894027 (Version 2)
Quarter: 2014Q2

REPORT INFORMATION
  Report Type: Spontaneous
  Country: US (occurrence: US)
  Receive Date: 20140213
  Receipt Date: 20140514
  Transmission Date: 20141212
  Serious: Yes (Other)
  Sender: FDA-Public Use
  Company Number: US-PFIZER INC-2014040319

PATIENT
  Sex: Male
  Weight: 136 kg

DRUGS (1)
  1. DILANTIN-125 [Suspect]
     Dosage: UNK

REACTIONS (3)
  - Convulsion [Not Recovered/Not Resolved]
  - Weight increased [Unknown]
  - Movement disorder [Unknown]
